FAERS Safety Report 5766732-8 (Version None)
Quarter: 2008Q2

REPORT INFORMATION
  Report Type: 
  Country: None (occurrence: None)
  Receive Date: 20080610
  Receipt Date: 20080610
  Transmission Date: 20081010
  Serious: Yes (Death)
  Sender: FDA-Public Use
  Company Number: None

PATIENT
  Sex: Female

DRUGS (11)
  1. REVLIMID [Suspect]
     Indication: AMYLOIDOSIS
     Dosage: 15MG DAILY 21D/28D PO
     Route: 048
  2. K-TAB [Concomitant]
  3. NORTRIPTYLINE HCL [Concomitant]
  4. LOVASTATIN [Concomitant]
  5. FUROSEMIDE [Concomitant]
  6. PREDNISONE TAB [Concomitant]
  7. LORAZEPAM [Concomitant]
  8. SINGULAIR [Concomitant]
  9. METOLAZONE [Concomitant]
  10. FAMOTIDINE [Concomitant]
  11. ASPIRIN [Concomitant]

REACTIONS (2)
  - CARDIAC ARREST [None]
  - CARDIOMYOPATHY [None]
